FAERS Safety Report 15434901 (Version 1)
Quarter: 2018Q4

REPORT INFORMATION
  Report Type: Spontaneous
  Country: US (occurrence: US)
  Receive Date: 20180927
  Receipt Date: 20180927
  Transmission Date: 20190204
  Serious: No
  Sender: FDA-Public Use
  Company Number: US-INDIVIOR LIMITED-INDV-111229-2018

PATIENT
  Sex: Male

DRUGS (1)
  1. SUBOXONE [Suspect]
     Active Substance: BUPRENORPHINE HYDROCHLORIDE\NALOXONE HYDROCHLORIDE
     Indication: PAIN
     Dosage: HALF OF A FILM, ONCE
     Route: 065
     Dates: start: 20180525, end: 20180525

REACTIONS (10)
  - Anger [Unknown]
  - Skin burning sensation [None]
  - Drug withdrawal syndrome [Recovering/Resolving]
  - Confusional state [Unknown]
  - Condition aggravated [Recovering/Resolving]
  - Wrong technique in product usage process [Recovered/Resolved]
  - Fear [Unknown]
  - Agitation [Unknown]
  - Feeling abnormal [Unknown]
  - Anxiety [None]

NARRATIVE: CASE EVENT DATE: 20180525
